FAERS Safety Report 10250608 (Version 1)
Quarter: 2014Q2

REPORT INFORMATION
  Report Type: Spontaneous
  Country: US (occurrence: US)
  Receive Date: 20140620
  Receipt Date: 20140620
  Transmission Date: 20141212
  Serious: Yes (Other)
  Sender: FDA-Public Use
  Company Number: US-GLAXOSMITHKLINE-A1077795A

PATIENT
  Age: 43 Year
  Sex: Female

DRUGS (1)
  1. ZOFRAN [Suspect]
     Indication: CROHN^S DISEASE
     Dosage: 8MG UNKNOWN
     Route: 065
     Dates: start: 20091103

REACTIONS (1)
  - Crohn^s disease [Unknown]
